FAERS Safety Report 17406782 (Version 1)
Quarter: 2020Q1

REPORT INFORMATION
  Report Type: Spontaneous
  Country: US (occurrence: US)
  Receive Date: 20200212
  Receipt Date: 20200212
  Transmission Date: 20200409
  Serious: No
  Sender: FDA-Public Use
  Company Number: US-ALLERGAN-1950042US

PATIENT
  Age: 63 Year
  Sex: Female

DRUGS (3)
  1. VIIBRYD [Suspect]
     Active Substance: VILAZODONE HYDROCHLORIDE
     Dosage: 10-20 MG
  2. VIIBRYD [Suspect]
     Active Substance: VILAZODONE HYDROCHLORIDE
     Indication: DEPRESSION
     Dosage: 20 MG
  3. VIIBRYD [Suspect]
     Active Substance: VILAZODONE HYDROCHLORIDE
     Dosage: 40 MG

REACTIONS (2)
  - Ventricular extrasystoles [Not Recovered/Not Resolved]
  - Depression [Unknown]
